FAERS Safety Report 26156407 (Version 1)
Quarter: 2025Q4

REPORT INFORMATION
  Report Type: Spontaneous
  Country: US (occurrence: US)
  Receive Date: 20251215
  Receipt Date: 20251215
  Transmission Date: 20260118
  Serious: Yes (Other)
  Sender: STRIDES
  Company Number: US-STRIDES ARCOLAB LIMITED-2025SP015013

PATIENT
  Age: 3 Year
  Sex: Male

DRUGS (4)
  1. MYCOPHENOLATE MOFETIL [Suspect]
     Active Substance: MYCOPHENOLATE MOFETIL
     Indication: Pemphigus
     Dosage: 20 MILLIGRAM/KILOGRAM, QD
     Route: 065
  2. PREDNISOLONE [Suspect]
     Active Substance: PREDNISOLONE
     Indication: Pemphigus
     Dosage: 1 MILLIGRAM/KILOGRAM, QD FIRST TAPER
     Route: 065
  3. PREDNISOLONE [Suspect]
     Active Substance: PREDNISOLONE
     Dosage: 1 MILLIGRAM/KILOGRAM, QD SECOND TAPER
     Route: 065
  4. DAPSONE [Suspect]
     Active Substance: DAPSONE
     Indication: Pemphigus
     Dosage: 2 MILLIGRAM/KILOGRAM, QD
     Route: 065

REACTIONS (6)
  - Drug ineffective for unapproved indication [Unknown]
  - Drug ineffective [Unknown]
  - Onychomadesis [Recovering/Resolving]
  - Blister [Recovering/Resolving]
  - Mucosal erosion [Recovering/Resolving]
  - Rebound effect [Unknown]
